FAERS Safety Report 12460979 (Version 2)
Quarter: 2016Q2

REPORT INFORMATION
  Report Type: Spontaneous
  Country: US (occurrence: US)
  Receive Date: 20160613
  Receipt Date: 20160628
  Transmission Date: 20160815
  Serious: Yes (Hospitalization)
  Sender: FDA-Public Use
  Company Number: US-UNITED THERAPEUTICS-UNT-2016-007959

PATIENT
  Age: 30 Year
  Sex: Male
  Weight: 68.27 kg

DRUGS (4)
  1. XARELTO [Concomitant]
     Active Substance: RIVAROXABAN
     Indication: PRODUCT USED FOR UNKNOWN INDICATION
  2. WARFARIN [Concomitant]
     Active Substance: WARFARIN
     Indication: PRODUCT USED FOR UNKNOWN INDICATION
  3. REMODULIN [Suspect]
     Active Substance: TREPROSTINIL
     Indication: PULMONARY HYPERTENSION
     Dosage: 0.020 ?G/KG, CONTINUING
     Route: 041
     Dates: start: 20160324, end: 20160602
  4. ELIQUIS [Concomitant]
     Active Substance: APIXABAN
     Indication: PRODUCT USED FOR UNKNOWN INDICATION

REACTIONS (13)
  - Device occlusion [Recovered/Resolved]
  - Muscular weakness [Recovering/Resolving]
  - Deep vein thrombosis [Recovered/Resolved]
  - Injection site irritation [Recovered/Resolved]
  - Eye disorder [Unknown]
  - Muscle twitching [Unknown]
  - Injection site discharge [Recovering/Resolving]
  - Nervousness [Unknown]
  - Sleep disorder [Unknown]
  - Restlessness [Unknown]
  - Rash pruritic [Recovered/Resolved]
  - Device related infection [Recovered/Resolved]
  - Wound [Recovered/Resolved]

NARRATIVE: CASE EVENT DATE: 201605
